FAERS Safety Report 9377677 (Version 2)
Quarter: 2013Q3

REPORT INFORMATION
  Report Type: Spontaneous
  Country: DE (occurrence: None)
  Receive Date: 20130625
  Receipt Date: 20130702
  Transmission Date: 20140515
  Serious: Yes (Other)
  Sender: FDA-Public Use
  Company Number: GER/GER/13/0030066

PATIENT
  Age: 78 Year
  Sex: Male
  Weight: 84 kg

DRUGS (11)
  1. IBUPROFEN (IBUPROFEN) [Suspect]
     Indication: NEURALGIA
     Dates: start: 2007, end: 2012
  2. ALLOPURINOL [Suspect]
     Indication: PRODUCT USED FOR UNKNOWN INDICATION
     Dates: start: 2003, end: 2012
  3. CODIOVAN [Suspect]
     Indication: HYPERTENSION
     Route: 048
     Dates: start: 2003, end: 2013
  4. UROXATRAL [Suspect]
     Indication: PROSTATIC ADENOMA
     Dates: start: 2003, end: 2013
  5. ATENOLOL (ATENOLOL) [Concomitant]
  6. METFORMIN (METFORMIN) [Concomitant]
  7. JANUMET 50/1000 (RISTFOR) [Concomitant]
  8. PALEXIA 50 RETARD (TAPENTADOL HYDROCHLORIDE) [Concomitant]
  9. ARCOXIA 120 (ETORICOXIB) [Concomitant]
  10. DOXYCYCLIN (DOXYCYCLINE) [Concomitant]
  11. TRAMADOL LONG 100 (TRAMDOL) [Concomitant]

REACTIONS (3)
  - Pancytopenia [None]
  - Renal impairment [None]
  - Anaemia [None]
